APPROVED DRUG PRODUCT: TAMSULOSIN HYDROCHLORIDE
Active Ingredient: TAMSULOSIN HYDROCHLORIDE
Strength: 0.4MG
Dosage Form/Route: CAPSULE;ORAL
Application: A077630 | Product #001 | TE Code: AB
Applicant: TEVA PHARMACEUTICALS USA
Approved: Apr 27, 2010 | RLD: No | RS: No | Type: RX